FAERS Safety Report 8247933-6 (Version None)
Quarter: 2012Q1

REPORT INFORMATION
  Report Type: 
  Country: None (occurrence: None)
  Receive Date: 20120330
  Receipt Date: 20120321
  Transmission Date: 20120608
  Serious: Yes (Other)
  Sender: FDA-Public Use
  Company Number: US-BRISTOL-MYERS SQUIBB COMPANY-16412371

PATIENT
  Age: 14 Year
  Sex: Male

DRUGS (2)
  1. ABILIFY [Suspect]
     Indication: ANGER
     Dosage: 1DF= ABILIFY 10MG IN AM, 15MG IN PM
  2. ABILIFY [Suspect]
     Indication: AFFECTIVE DISORDER
     Dosage: 1DF= ABILIFY 10MG IN AM, 15MG IN PM

REACTIONS (5)
  - BLOOD CREATINE PHOSPHOKINASE INCREASED [None]
  - ELECTROCARDIOGRAM ST SEGMENT ELEVATION [None]
  - AKATHISIA [None]
  - ELECTROCARDIOGRAM REPOLARISATION ABNORMALITY [None]
  - CONDUCTION DISORDER [None]
